FAERS Safety Report 11350462 (Version 1)
Quarter: 2015Q3

REPORT INFORMATION
  Report Type: Spontaneous
  Country: US (occurrence: None)
  Receive Date: 20150805
  Receipt Date: 20150805
  Transmission Date: 20151125
  Serious: No
  Sender: FDA-Public Use
  Company Number: None

PATIENT
  Age: 77 Year
  Sex: Male

DRUGS (14)
  1. INSULIN ASPART [Suspect]
     Active Substance: INSULIN ASPART
     Indication: HYPERGLYCAEMIA
     Dosage: 13 UNITS
     Route: 058
     Dates: start: 20141129, end: 20141130
  2. CLOPIDOGREL [Concomitant]
     Active Substance: CLOPIDOGREL BISULFATE
  3. INSULIN GLARGINE [Concomitant]
     Active Substance: INSULIN GLARGINE
     Dosage: 6 UNITS
     Route: 058
  4. ASPIRIN. [Concomitant]
     Active Substance: ASPIRIN
  5. VANCOMYCIN [Concomitant]
     Active Substance: VANCOMYCIN
  6. MAGNESIUM OXIDE. [Concomitant]
     Active Substance: MAGNESIUM OXIDE
  7. PIPERACCILLIN/TAZOBACTAM [Concomitant]
  8. TAMSULOSIN [Concomitant]
     Active Substance: TAMSULOSIN
  9. HEPARIN [Concomitant]
     Active Substance: HEPARIN SODIUM
  10. LACTOBACILLUS GRANULES [Concomitant]
  11. THIAMINE. [Concomitant]
     Active Substance: THIAMINE
  12. ATORVASTATIN [Concomitant]
     Active Substance: ATORVASTATIN
  13. FOLIC ACID. [Concomitant]
     Active Substance: FOLIC ACID
  14. LISINOPRIL. [Concomitant]
     Active Substance: LISINOPRIL

REACTIONS (1)
  - Blood glucose decreased [None]

NARRATIVE: CASE EVENT DATE: 20141130
